FAERS Safety Report 12799380 (Version 1)
Quarter: 2016Q3

REPORT INFORMATION
  Report Type: Spontaneous
  Country: FR (occurrence: FR)
  Receive Date: 20160930
  Receipt Date: 20160930
  Transmission Date: 20161109
  Serious: Yes (Hospitalization)
  Sender: FDA-Public Use
  Company Number: FR-INCYTE CORPORATION-2016IN006095

PATIENT
  Age: 71 Year
  Sex: Male
  Weight: 60 kg

DRUGS (1)
  1. JAKAFI [Suspect]
     Active Substance: RUXOLITINIB
     Indication: MYELOFIBROSIS
     Dosage: 30 MG, UNK
     Route: 048
     Dates: start: 2015, end: 20160612

REACTIONS (6)
  - Pyrexia [Recovered/Resolved]
  - Acute respiratory distress syndrome [Recovered/Resolved]
  - Tachycardia [Recovered/Resolved]
  - Lung disorder [Recovered/Resolved]
  - Hypotension [Recovered/Resolved]
  - Opportunistic infection [Recovered/Resolved]

NARRATIVE: CASE EVENT DATE: 20160612
